FAERS Safety Report 6942216-6 (Version None)
Quarter: 2010Q3

REPORT INFORMATION
  Report Type: 
  Country: None (occurrence: None)
  Receive Date: 20100826
  Receipt Date: 20100113
  Transmission Date: 20110219
  Serious: Yes (Hospitalization)
  Sender: FDA-Public Use
  Company Number: JP-ASTRAZENECA-2010SE39707

PATIENT
  Age: 60 Year
  Sex: Male

DRUGS (1)
  1. COKENZEN [Suspect]
     Indication: HYPERTENSION
     Dosage: 16/12.5 DAILY
     Route: 048
     Dates: start: 20080101, end: 20100201

REACTIONS (1)
  - RASH PAPULAR [None]
